FAERS Safety Report 8152286-8 (Version None)
Quarter: 2012Q1

REPORT INFORMATION
  Report Type: 
  Country: None (occurrence: None)
  Receive Date: 20120215
  Receipt Date: 20120215
  Transmission Date: 20120608
  Serious: Yes (Hospitalization)
  Sender: FDA-Public Use
  Company Number: None

PATIENT
  Sex: Female
  Weight: 14 kg

DRUGS (6)
  1. CYTARABINE [Suspect]
     Dosage: 166 MG
  2. PEG-L-ASPARAGINASE (K-H) [Suspect]
     Dosage: 6500 IU
  3. METHOTREXATE [Suspect]
     Dosage: 48 MG
  4. DOXORUBICIN HCL [Suspect]
     Dosage: 39 MG
  5. VINCRISTINE SULFATE [Suspect]
     Dosage: 4 MG
  6. PREDNISONE [Suspect]
     Dosage: 162 MG

REACTIONS (10)
  - BRONCHOPULMONARY ASPERGILLOSIS [None]
  - PULMONARY HAEMORRHAGE [None]
  - STREPTOCOCCAL SEPSIS [None]
  - PYREXIA [None]
  - LUNG NEOPLASM [None]
  - HAEMODIALYSIS [None]
  - FUNGAL TEST POSITIVE [None]
  - MULTI-ORGAN FAILURE [None]
  - NEUTROPENIA [None]
  - RESPIRATORY FAILURE [None]
